FAERS Safety Report 8769631 (Version 5)
Quarter: 2013Q3

REPORT INFORMATION
  Report Type: Report from Study
  Country: JP (occurrence: JP)
  Receive Date: 20120905
  Receipt Date: 20130708
  Transmission Date: 20140515
  Serious: Yes (Hospitalization, Other)
  Sender: FDA-Public Use
  Company Number: JP-009507513-1208JPN009252

PATIENT
  Age: 65 Year
  Sex: Female
  Weight: 45 kg

DRUGS (18)
  1. PEGINTRON [Suspect]
     Indication: CHRONIC HEPATITIS C
     Dosage: 1.5 MICROGRAM PER KILOGRAM, QW
     Route: 058
     Dates: start: 20120424, end: 20120612
  2. PEGINTRON [Suspect]
     Dosage: 1.5 MICROGRAM PER KILOGRAM, QW
     Route: 058
     Dates: start: 20120624, end: 20121002
  3. REBETOL [Suspect]
     Indication: CHRONIC HEPATITIS C
     Dosage: 600 MG, QD
     Route: 048
     Dates: start: 20120424, end: 20120507
  4. REBETOL [Suspect]
     Dosage: 200 MG, QD
     Route: 048
     Dates: start: 20120508, end: 20120522
  5. REBETOL [Suspect]
     Dosage: 200 MG, QOD
     Route: 048
     Dates: start: 20120522, end: 20120618
  6. REBETOL [Suspect]
     Dosage: 200 MG, QOD
     Route: 048
     Dates: start: 20120624, end: 20120813
  7. REBETOL [Suspect]
     Dosage: 200 MG, QD
     Route: 048
     Dates: start: 20120814, end: 20120911
  8. REBETOL [Suspect]
     Dosage: 400 MG, QD
     Route: 048
     Dates: start: 20120912, end: 20121008
  9. TELAVIC [Suspect]
     Indication: CHRONIC HEPATITIS C
     Dosage: 1500 MG, QD
     Route: 048
     Dates: start: 20120424, end: 20120522
  10. TELAVIC [Suspect]
     Dosage: 1000 MG, QD
     Route: 048
     Dates: start: 20120522, end: 20120618
  11. TELAVIC [Suspect]
     Dosage: 1000 MG, QD
     Route: 048
     Dates: start: 20120624
  12. MAINTATE [Concomitant]
     Indication: HYPERTENSION
     Dosage: 5 MG, QD
     Route: 048
     Dates: start: 20120403
  13. CELECOX [Concomitant]
     Indication: PROPHYLAXIS
     Dosage: 200 MG, QD
     Route: 048
     Dates: start: 20120502, end: 20121008
  14. MUCOSTA [Concomitant]
     Indication: PROPHYLAXIS
     Dosage: 200 MG, QD
     Route: 048
     Dates: start: 20120502, end: 20121105
  15. FEBURIC [Concomitant]
     Indication: HYPERURICAEMIA
     Dosage: 30 MG, QD
     Route: 048
     Dates: start: 20120613, end: 20120827
  16. FEBURIC [Concomitant]
     Dosage: 20 MG, QD
     Route: 048
     Dates: start: 20120912
  17. ALLEGRA [Concomitant]
     Indication: PROPHYLAXIS
     Dosage: 120 MG, QD
     Route: 048
     Dates: end: 20121025
  18. RINDERON V [Concomitant]
     Indication: CHRONIC HEPATITIS C
     Dosage: AS NEEDED
     Route: 061

REACTIONS (2)
  - Urinary tract infection [Recovered/Resolved]
  - White blood cell count decreased [Not Recovered/Not Resolved]
